FAERS Safety Report 9506109 (Version 1)
Quarter: 2013Q1

REPORT INFORMATION
  Report Type: Spontaneous
  Country: US (occurrence: None)
  Receive Date: 20130301
  Receipt Date: 20130301
  Transmission Date: 20140127
  Serious: Yes (Hospitalization)
  Sender: FDA-Public Use
  Company Number: 365247

PATIENT
  Age: 28 Year
  Sex: Female
  Weight: 113.4 kg

DRUGS (1)
  1. NOVOLIN 70/30 [Suspect]
     Indication: TYPE 2 DIABETES MELLITUS
     Dosage: 20 UNITS IN AM
     Route: 058
     Dates: start: 20121121

REACTIONS (2)
  - Product container issue [None]
  - Blood glucose increased [None]
